FAERS Safety Report 7820130-1 (Version None)
Quarter: 2011Q4

REPORT INFORMATION
  Report Type: 
  Country: None (occurrence: None)
  Receive Date: 20111018
  Receipt Date: 20111004
  Transmission Date: 20120403
  Serious: Yes (Other)
  Sender: FDA-Public Use
  Company Number: PHHY2011MX88035

PATIENT
  Sex: Female

DRUGS (2)
  1. EXFORGE HCT [Suspect]
     Indication: HYPERTENSION
     Dosage: 1 DF, DAILY (160 MG VALS/5 MG AMLO/12.5 MG HYDR)
     Dates: start: 20110228, end: 20110301
  2. EXFORGE HCT [Suspect]
     Dosage: 1 DF, DAILY (75 MG)
     Dates: start: 20110301, end: 20110301

REACTIONS (4)
  - HYPERTENSION [None]
  - TREMOR [None]
  - FEELING ABNORMAL [None]
  - INFARCTION [None]
